FAERS Safety Report 23160678 (Version 1)
Quarter: 2023Q4

REPORT INFORMATION
  Report Type: Spontaneous
  Country: CA (occurrence: CA)
  Receive Date: 20231108
  Receipt Date: 20231108
  Transmission Date: 20240110
  Serious: Yes (Hospitalization, Other)
  Sender: FDA-Public Use
  Company Number: CA-PFIZER INC-202300354044

PATIENT
  Age: 26 Year
  Sex: Female
  Weight: 67 kg

DRUGS (3)
  1. DACARBAZINE [Suspect]
     Active Substance: DACARBAZINE
     Indication: Hodgkin^s disease
     Dosage: 690 MG, CYCLIC
  2. ADRIAMYCIN [Suspect]
     Active Substance: DOXORUBICIN HYDROCHLORIDE
     Dosage: 46 MG, CYCLIC
     Route: 042
  3. VINBLASTINE [Suspect]
     Active Substance: VINBLASTINE
     Dosage: 11 MG, CYCLIC
     Route: 042

REACTIONS (2)
  - Pancytopenia [Recovered/Resolved]
  - Off label use [Unknown]
